FAERS Safety Report 7473956-0 (Version None)
Quarter: 2011Q2

REPORT INFORMATION
  Report Type: 
  Country: None (occurrence: None)
  Receive Date: 20110511
  Receipt Date: 20090205
  Transmission Date: 20111010
  Serious: Yes (Death, Other)
  Sender: FDA-Public Use
  Company Number: US-BAYER-200912763NA

PATIENT
  Age: 74 Year
  Sex: Male
  Weight: 80 kg

DRUGS (15)
  1. CARVEDILOL [Concomitant]
     Dosage: 3.125 MG, BID
     Route: 048
  2. VANCOMYCIN [Concomitant]
     Dosage: 1 G, UNK
     Route: 061
     Dates: start: 20070605
  3. NADOLOL [Concomitant]
     Dosage: 20 MG, QD
     Route: 048
  4. NORMOSOL R [Concomitant]
     Dosage: 1000 ML, UNK
     Dates: start: 20070605
  5. PAPAVERINE [PAPAVERINE] [Concomitant]
     Dosage: 30 MG, UNK
     Route: 042
     Dates: start: 20070605
  6. AMICAR [Concomitant]
     Dosage: 10GM X 2
     Route: 042
     Dates: start: 20070605
  7. TRASYLOL [Suspect]
     Dosage: TOTAL 628 ML AT THE RATE OF 25 ML PER HOUR
     Route: 042
     Dates: start: 20070606, end: 20070607
  8. HEPARIN [Concomitant]
     Dosage: 30000 U, UNK
     Route: 042
     Dates: start: 20070606
  9. CEFAZOLIN [Concomitant]
     Dosage: 1000 MG, UNK
     Route: 042
     Dates: start: 20070605
  10. TRASYLOL [Suspect]
     Indication: CORONARY ARTERY BYPASS
     Dosage: 100 ML, UNK
     Route: 042
     Dates: start: 20070605, end: 20070605
  11. ACETYLSALICYLIC ACID SRT [Concomitant]
     Dosage: 325 MG, UNK
     Route: 048
  12. TRASYLOL [Suspect]
     Dosage: 25CC/HR INFUSION
     Route: 042
     Dates: start: 20070605, end: 20070605
  13. TRASYLOL [Suspect]
     Dosage: UNK
     Route: 042
     Dates: end: 20070612
  14. LISINOPRIL [Concomitant]
     Dosage: 2.5 MG, QD
     Route: 048
  15. TRASYLOL [Suspect]
     Dosage: 100 ML OVER 20 MINUTES
     Route: 042
     Dates: start: 20070605, end: 20070605

REACTIONS (3)
  - CARDIOGENIC SHOCK [None]
  - RENAL FAILURE [None]
  - INJURY [None]
